FAERS Safety Report 16986535 (Version 1)
Quarter: 2019Q4

REPORT INFORMATION
  Report Type: Spontaneous
  Country: US (occurrence: US)
  Receive Date: 20190918
  Receipt Date: 20190918
  Transmission Date: 20200122
  Serious: No
  Sender: FDA-Public Use
  Company Number: None

PATIENT
  Sex: Female

DRUGS (1)
  1. DALFAMPRIDINE ER 10MG AUROBINDO PHARMA [Suspect]
     Active Substance: DALFAMPRIDINE
     Route: 048
     Dates: start: 20190812

REACTIONS (4)
  - Loss of personal independence in daily activities [None]
  - Bradyphrenia [None]
  - Feeling jittery [None]
  - Blood pressure increased [None]
